FAERS Safety Report 5999900-0 (Version None)
Quarter: 2008Q4

REPORT INFORMATION
  Report Type: 
  Country: None (occurrence: None)
  Receive Date: 20081215
  Receipt Date: 20081205
  Transmission Date: 20090506
  Serious: Yes (Other)
  Sender: FDA-Public Use
  Company Number: PHHY2008CA29015

PATIENT
  Sex: Female

DRUGS (6)
  1. ZOLEDRONIC ACID [Suspect]
     Indication: OSTEOPOROSIS POSTMENOPAUSAL
     Dosage: 5 MG /YEAR
  2. PREDNISONE TAB [Concomitant]
     Dosage: 10 MG DAILY
  3. VITAMIN D [Concomitant]
     Dosage: 10000 U
  4. ZYTRAM [Concomitant]
     Dosage: 300 MG
  5. STATEX [Concomitant]
     Dosage: 5 MG, BID
  6. M-ESLON [Concomitant]
     Dosage: 10 MG, BID

REACTIONS (5)
  - HEADACHE [None]
  - INSOMNIA [None]
  - LIP DRY [None]
  - MUSCULOSKELETAL PAIN [None]
  - PAIN IN EXTREMITY [None]
